FAERS Safety Report 6203846-2 (Version None)
Quarter: 2009Q2

REPORT INFORMATION
  Report Type: 
  Country: None (occurrence: None)
  Receive Date: 20090527
  Receipt Date: 20090518
  Transmission Date: 20091009
  Serious: Yes (Hospitalization, Other)
  Sender: FDA-Public Use
  Company Number: TH-PFIZER INC-2009214312

PATIENT
  Age: 37 Year

DRUGS (3)
  1. CELEBREX [Suspect]
     Dosage: 200 MG, 1X/DAY
     Route: 048
     Dates: start: 20090513, end: 20090514
  2. MUCOSOLVAN [Concomitant]
     Route: 048
  3. FLUIMICIL [Concomitant]
     Dosage: 200 MG, UNK
     Route: 048

REACTIONS (4)
  - BRONCHOSPASM [None]
  - INCREASED UPPER AIRWAY SECRETION [None]
  - MUTISM [None]
  - PULMONARY CALCIFICATION [None]
